FAERS Safety Report 4706676-3 (Version None)
Quarter: 2005Q3

REPORT INFORMATION
  Report Type: 
  Country: None (occurrence: None)
  Receive Date: 20050705
  Receipt Date: 20050622
  Transmission Date: 20060218
  Serious: Yes (Other)
  Sender: FDA-Public Use
  Company Number: 2005SE03683

PATIENT
  Sex: Female

DRUGS (4)
  1. SEROQUEL [Suspect]
     Indication: BIPOLAR DISORDER
     Route: 048
  2. EPILIM [Concomitant]
     Indication: BIPOLAR DISORDER
     Dates: start: 20030101
  3. ZOPIMED [Concomitant]
     Indication: INSOMNIA
     Dates: start: 20030101
  4. ELTROXIN [Concomitant]
     Indication: BIPOLAR DISORDER
     Dates: start: 20050501

REACTIONS (2)
  - LEUKOPENIA [None]
  - NEUTROPENIA [None]
